APPROVED DRUG PRODUCT: SEVELAMER CARBONATE
Active Ingredient: SEVELAMER CARBONATE
Strength: 800MG
Dosage Form/Route: TABLET;ORAL
Application: A203860 | Product #001 | TE Code: AB
Applicant: INVAGEN PHARMACEUTICALS INC
Approved: Oct 26, 2017 | RLD: No | RS: No | Type: RX